FAERS Safety Report 22688558 (Version 6)
Quarter: 2024Q1

REPORT INFORMATION
  Report Type: Report from Study
  Country: CN (occurrence: CN)
  Receive Date: 20230710
  Receipt Date: 20240312
  Transmission Date: 20240410
  Serious: Yes (Other)
  Sender: FDA-Public Use
  Company Number: CN-TAKEDA-2023TUS053034

PATIENT
  Age: 63 Year
  Sex: Female
  Weight: 45 kg

DRUGS (15)
  1. IXAZOMIB [Suspect]
     Active Substance: IXAZOMIB
     Indication: Plasma cell myeloma
     Dosage: 4 MILLIGRAM, QD
     Route: 048
     Dates: start: 20230427
  2. IXAZOMIB [Suspect]
     Active Substance: IXAZOMIB
     Dosage: 4 MILLIGRAM, 1/WEEK
     Route: 048
     Dates: start: 20230619
  3. CALCITRIOL [Concomitant]
     Active Substance: CALCITRIOL
     Indication: Osteoporosis
     Dosage: 0.25 MICROGRAM, QD
     Route: 048
     Dates: start: 20230427, end: 202306
  4. CALCIUM CARBONATE\CHOLECALCIFEROL [Concomitant]
     Active Substance: CALCIUM CARBONATE\CHOLECALCIFEROL
     Indication: Osteoporosis
     Dosage: 0.6 GRAM, QD
     Route: 048
     Dates: start: 20230507, end: 202306
  5. ALBUMIN HUMAN [Concomitant]
     Active Substance: ALBUMIN HUMAN
     Indication: Hypoproteinaemia
     Dosage: 20 GRAM, QD
     Route: 041
     Dates: start: 20230427, end: 20230428
  6. CALCIUM GLUCONATE [Concomitant]
     Active Substance: CALCIUM GLUCONATE
     Indication: Hypocalcaemia
     Dosage: 20 MILLILITER, QD
     Route: 042
     Dates: start: 20230506, end: 20230506
  7. HUMAN RED BLOOD CELL [Concomitant]
     Active Substance: HUMAN RED BLOOD CELL
     Indication: Anaemia
     Dosage: UNK UNK, QD
     Route: 042
     Dates: start: 20230517, end: 20230517
  8. SULFAMETHOXAZOLE [Concomitant]
     Active Substance: SULFAMETHOXAZOLE
     Indication: Prophylaxis
     Dosage: 0.48 GRAM, TID
     Route: 048
     Dates: start: 20230518, end: 20230524
  9. ACYCLOVIR [Concomitant]
     Active Substance: ACYCLOVIR
     Indication: Herpes zoster
     Dosage: 0.4 GRAM, TID
     Route: 048
     Dates: start: 20230518, end: 20230525
  10. ACYCLOVIR [Concomitant]
     Active Substance: ACYCLOVIR
     Dosage: 0.4 GRAM, TID
     Route: 048
     Dates: start: 20230528, end: 20230606
  11. ESOMEPRAZOLE MAGNESIUM [Concomitant]
     Active Substance: ESOMEPRAZOLE\ESOMEPRAZOLE MAGNESIUM\ESOMEPRAZOLE MAGNESIUM DIHYDRATE
     Indication: Prophylaxis
     Dosage: 20 MILLIGRAM, QD
     Route: 048
     Dates: start: 20230526, end: 20230603
  12. PROMETHAZINE HYDROCHLORIDE [Concomitant]
     Active Substance: PROMETHAZINE HYDROCHLORIDE
     Indication: Allergy prophylaxis
     Dosage: 25 MILLIGRAM, QD
     Route: 030
     Dates: start: 20230527, end: 20230527
  13. ACETAMINOPHEN [Concomitant]
     Active Substance: ACETAMINOPHEN
     Indication: Pyrexia
     Dosage: 0.5 GRAM, QD
     Route: 048
     Dates: start: 20230527, end: 20230527
  14. DEXAMETHASONE PHOSPHATE [Concomitant]
     Active Substance: DEXAMETHASONE PHOSPHATE
     Indication: Allergy prophylaxis
     Dosage: 40 MILLIGRAM, QD
     Route: 042
     Dates: start: 20230527, end: 20230527
  15. DALOTUZUMAB [Concomitant]
     Active Substance: DALOTUZUMAB
     Indication: Plasma cell myeloma
     Dosage: 720 MILLIGRAM, QD
     Route: 042
     Dates: start: 20230527, end: 20230527

REACTIONS (6)
  - Cardiac failure [Not Recovered/Not Resolved]
  - Hypokalaemia [Recovered/Resolved]
  - Occult blood positive [Not Recovered/Not Resolved]
  - Diarrhoea [Recovered/Resolved]
  - Hyperuricaemia [Not Recovered/Not Resolved]
  - Off label use [Unknown]

NARRATIVE: CASE EVENT DATE: 20230527
